FAERS Safety Report 6755251-8 (Version None)
Quarter: 2010Q2

REPORT INFORMATION
  Report Type: 
  Country: None (occurrence: None)
  Receive Date: 20100604
  Receipt Date: 20100525
  Transmission Date: 20101027
  Serious: No
  Sender: FDA-Public Use
  Company Number: 2008BI031981

PATIENT
  Age: 52 Year
  Sex: Female

DRUGS (1)
  1. TYSABRI [Suspect]
     Indication: MULTIPLE SCLEROSIS
     Route: 042
     Dates: start: 20080507

REACTIONS (9)
  - ARTHRALGIA [None]
  - ARTHRITIS [None]
  - BALANCE DISORDER [None]
  - FALL [None]
  - JOINT INSTABILITY [None]
  - JOINT RANGE OF MOTION DECREASED [None]
  - LOSS OF CONTROL OF LEGS [None]
  - MUSCULAR WEAKNESS [None]
  - READING DISORDER [None]
